FAERS Safety Report 23638439 (Version 1)
Quarter: 2024Q1

REPORT INFORMATION
  Report Type: Spontaneous
  Country: CA (occurrence: CA)
  Receive Date: 20240315
  Receipt Date: 20240315
  Transmission Date: 20240409
  Serious: Yes (Other)
  Sender: FDA-Public Use
  Company Number: CA-GENMAB-2024-00840

PATIENT
  Sex: Male

DRUGS (1)
  1. EPKINLY [Suspect]
     Active Substance: EPCORITAMAB-BYSP
     Indication: High-grade B-cell lymphoma
     Dosage: DOSE: 48 MG/0.8ML  VIA FREQUENCY TEXT:  CYCLE 3: 48 MG WEEKLY
     Route: 058
     Dates: start: 20231221, end: 20240305

REACTIONS (2)
  - High-grade B-cell lymphoma [Unknown]
  - Drug ineffective [Unknown]
